FAERS Safety Report 4279675-6 (Version None)
Quarter: 2004Q1

REPORT INFORMATION
  Report Type: 
  Country: None (occurrence: None)
  Receive Date: 20040123
  Receipt Date: 20040107
  Transmission Date: 20041129
  Serious: Yes (Hospitalization, Other)
  Sender: FDA-Public Use
  Company Number: 2004003672

PATIENT
  Age: 72 Year
  Sex: Female

DRUGS (2)
  1. LITHIUM CARBONATE [Suspect]
     Indication: ILL-DEFINED DISORDER
     Dosage: 900 MG (DAILY), UNKNOWN
  2. ROFECOXIB [Suspect]
     Indication: ILL-DEFINED DISORDER
     Dosage: 25 MG (DAILY), UNKNOWN

REACTIONS (4)
  - ASTERIXIS [None]
  - ATAXIA [None]
  - DRUG INTERACTION [None]
  - NYSTAGMUS [None]
